FAERS Safety Report 25243224 (Version 3)
Quarter: 2025Q3

REPORT INFORMATION
  Report Type: Spontaneous
  Country: US (occurrence: US)
  Receive Date: 20250428
  Receipt Date: 20250924
  Transmission Date: 20251021
  Serious: No
  Sender: BIOGEN
  Company Number: US-BIOGEN-2024BI01257526

PATIENT
  Sex: Female

DRUGS (16)
  1. AVONEX [Suspect]
     Active Substance: INTERFERON BETA-1A
     Indication: Multiple sclerosis
     Dosage: INJECT 30 MCG (1 SYRINGE) INTRAMUSCULARLY ONCE WEEKLY
     Route: 050
     Dates: start: 20030324
  2. AVONEX [Suspect]
     Active Substance: INTERFERON BETA-1A
  3. AVONEX [Suspect]
     Active Substance: INTERFERON BETA-1A
  4. AVONEX [Suspect]
     Active Substance: INTERFERON BETA-1A
  5. LOSARTAN POTASSIUM/HYDROC [Concomitant]
     Route: 050
  6. METOPROLOL TARTRATE [Concomitant]
     Active Substance: METOPROLOL TARTRATE
     Route: 050
  7. POTASSIUM ACETATE [Concomitant]
     Active Substance: POTASSIUM ACETATE
     Route: 050
  8. TYLENOL EXTRA STRENGTH [Concomitant]
     Active Substance: ACETAMINOPHEN
     Route: 050
  9. VITAMIN D3 [Concomitant]
     Active Substance: CHOLECALCIFEROL
     Route: 050
  10. LIVALO [Concomitant]
     Active Substance: PITAVASTATIN CALCIUM
     Route: 050
  11. GABAPENTIN [Concomitant]
     Active Substance: GABAPENTIN
     Route: 050
  12. MELATONIN [Concomitant]
     Active Substance: MELATONIN
     Route: 050
  13. PLAVIX [Concomitant]
     Active Substance: CLOPIDOGREL BISULFATE
     Route: 050
  14. KEFLEX [Concomitant]
     Active Substance: CEPHALEXIN
     Route: 050
  15. TACROLIMUS [Concomitant]
     Active Substance: TACROLIMUS
     Route: 050
  16. DULOXETINE HYDROCHLORIDE [Concomitant]
     Active Substance: DULOXETINE HYDROCHLORIDE
     Indication: Product used for unknown indication
     Route: 050

REACTIONS (7)
  - Injection site rash [Not Recovered/Not Resolved]
  - Multiple sclerosis [Unknown]
  - Pruritus [Unknown]
  - Erythema [Unknown]
  - Injection site mass [Unknown]
  - Influenza like illness [Unknown]
  - Hepatic enzyme increased [Unknown]
